FAERS Safety Report 12191562 (Version 1)
Quarter: 2016Q1

REPORT INFORMATION
  Report Type: Spontaneous
  Country: US (occurrence: US)
  Receive Date: 20160318
  Receipt Date: 20160318
  Transmission Date: 20160526
  Serious: Yes (Hospitalization)
  Sender: FDA-Public Use
  Company Number: US-BEH-2016060014

PATIENT
  Sex: Male
  Weight: 76 kg

DRUGS (38)
  1. PRIVIGEN [Suspect]
     Active Substance: HUMAN IMMUNOGLOBULIN G
     Dosage: 10 G VIAL
  2. DETROL LA [Concomitant]
     Active Substance: TOLTERODINE TARTRATE
  3. ALLOPURINOL. [Concomitant]
     Active Substance: ALLOPURINOL
  4. NASCOBAL [Concomitant]
     Active Substance: CYANOCOBALAMIN
  5. QUINIDINE SULFATE. [Concomitant]
     Active Substance: QUINIDINE SULFATE
  6. SYMBICORT [Concomitant]
     Active Substance: BUDESONIDE\FORMOTEROL FUMARATE DIHYDRATE
  7. LOPERAMIDE [Concomitant]
     Active Substance: LOPERAMIDE
  8. EPIPEN [Concomitant]
     Active Substance: EPINEPHRINE
  9. TRICOR [Concomitant]
     Active Substance: FENOFIBRATE
  10. PROMETHAZINE [Concomitant]
     Active Substance: PROMETHAZINE\PROMETHAZINE HYDROCHLORIDE
  11. FOLIC ACID. [Concomitant]
     Active Substance: FOLIC ACID
  12. HYDROXYZINE [Concomitant]
     Active Substance: HYDROXYZINE\HYDROXYZINE HYDROCHLORIDE
  13. PRIVIGEN [Suspect]
     Active Substance: HUMAN IMMUNOGLOBULIN G
     Indication: IMMUNODEFICIENCY COMMON VARIABLE
     Dosage: 5 G VIAL
  14. PRIVIGEN [Suspect]
     Active Substance: HUMAN IMMUNOGLOBULIN G
     Dosage: 20 G VIAL
  15. TAZTIA XT [Concomitant]
     Active Substance: DILTIAZEM HYDROCHLORIDE
  16. FEXOFENADINE [Concomitant]
     Active Substance: FEXOFENADINE\FEXOFENADINE HYDROCHLORIDE
  17. LASIX [Concomitant]
     Active Substance: FUROSEMIDE
  18. AMILORIDE [Concomitant]
     Active Substance: AMILORIDE
  19. HYDROCODONE BITARTRATE AND ACETAMINOPHEN [Concomitant]
     Active Substance: ACETAMINOPHEN\HYDROCODONE BITARTRATE
  20. PROAIR HFA [Concomitant]
     Active Substance: ALBUTEROL SULFATE
  21. DOCUSATE SODIUM. [Concomitant]
     Active Substance: DOCUSATE SODIUM
  22. VITAMIN D [Concomitant]
     Active Substance: CHOLECALCIFEROL
  23. DIPHENHYDRAMINE. [Concomitant]
     Active Substance: DIPHENHYDRAMINE
  24. HEPARIN [Concomitant]
     Active Substance: HEPARIN SODIUM
  25. SODIUM CHLORIDE. [Concomitant]
     Active Substance: SODIUM CHLORIDE
  26. FERROUS SULFATE [Concomitant]
     Active Substance: FERROUS SULFATE\FERROUS SULFATE, DRIED
  27. THEOPHYLLINE [Concomitant]
     Active Substance: THEOPHYLLINE ANHYDROUS
  28. VITAMIN B12 [Concomitant]
     Active Substance: CYANOCOBALAMIN
  29. POTASSIUM CHLORIDE. [Concomitant]
     Active Substance: POTASSIUM CHLORIDE
  30. MAGNESIUM [Concomitant]
     Active Substance: MAGNESIUM
  31. FAMOTIDINE. [Concomitant]
     Active Substance: FAMOTIDINE
  32. SINGULAIR [Concomitant]
     Active Substance: MONTELUKAST SODIUM
  33. ASTEPRO [Concomitant]
     Active Substance: AZELASTINE HYDROCHLORIDE
  34. PRIVIGEN [Suspect]
     Active Substance: HUMAN IMMUNOGLOBULIN G
     Route: 042
  35. GABAPENTIN. [Concomitant]
     Active Substance: GABAPENTIN
  36. COUMADIN [Concomitant]
     Active Substance: WARFARIN SODIUM
  37. NEXIUM [Concomitant]
     Active Substance: ESOMEPRAZOLE MAGNESIUM
  38. SPIRONOLACTONE. [Concomitant]
     Active Substance: SPIRONOLACTONE

REACTIONS (1)
  - Intestinal obstruction [Unknown]
